FAERS Safety Report 6731993-5 (Version None)
Quarter: 2010Q2

REPORT INFORMATION
  Report Type: 
  Country: None (occurrence: None)
  Receive Date: 20100519
  Receipt Date: 20100507
  Transmission Date: 20101027
  Serious: Yes (Other)
  Sender: FDA-Public Use
  Company Number: PHHY2010US14181

PATIENT
  Sex: Female

DRUGS (1)
  1. GLEEVEC [Suspect]
     Indication: CHRONIC MYELOID LEUKAEMIA
     Dosage: 400 MG DAILY
     Route: 048
     Dates: start: 20090619

REACTIONS (6)
  - ARTHRITIS [None]
  - BONE PAIN [None]
  - MUSCLE SPASMS [None]
  - MYALGIA [None]
  - NERVE COMPRESSION [None]
  - PAIN [None]
